FAERS Safety Report 17623663 (Version 3)
Quarter: 2020Q2

REPORT INFORMATION
  Report Type: Report from Study
  Country: US (occurrence: US)
  Receive Date: 20200403
  Receipt Date: 20200504
  Transmission Date: 20200713
  Serious: Yes (Hospitalization)
  Sender: FDA-Public Use
  Company Number: US-ACTELION-A-NJ2020-203849

PATIENT
  Sex: Female
  Weight: 77.1 kg

DRUGS (5)
  1. SILDENAFIL CITRATE. [Concomitant]
     Active Substance: SILDENAFIL CITRATE
  2. UPTRAVI [Suspect]
     Active Substance: SELEXIPAG
     Indication: PULMONARY HYPERTENSION
     Dosage: 200 MCG, BID
     Route: 048
     Dates: start: 20200319, end: 20200419
  3. UPTRAVI [Suspect]
     Active Substance: SELEXIPAG
     Dosage: UNK MCG, BID
     Route: 048
     Dates: start: 202003
  4. UPTRAVI [Suspect]
     Active Substance: SELEXIPAG
     Dosage: 600 MCG, BID
     Route: 048
  5. UPTRAVI [Suspect]
     Active Substance: SELEXIPAG
     Dosage: 400 MCG, QD
     Route: 048

REACTIONS (6)
  - Seizure [Unknown]
  - Vomiting [Unknown]
  - Ammonia increased [Unknown]
  - Headache [Unknown]
  - Cystitis [Unknown]
  - Inappropriate schedule of product administration [Unknown]
